FAERS Safety Report 25542489 (Version 1)
Quarter: 2025Q3

REPORT INFORMATION
  Report Type: Other
  Country: IN (occurrence: IN)
  Receive Date: 20250711
  Receipt Date: 20250711
  Transmission Date: 20251021
  Serious: Yes (Hospitalization, Other)
  Sender: Solis Pharmaceuticals
  Company Number: IN-Solis Pharmaceuticals Inc.-2180320

PATIENT
  Age: 8 Decade
  Sex: Female

DRUGS (2)
  1. DAPSONE [Suspect]
     Active Substance: DAPSONE
     Indication: Lichen planus
  2. LEVOTHYROXINE [Concomitant]
     Active Substance: LEVOTHYROXINE

REACTIONS (3)
  - Hypoxia [Recovered/Resolved]
  - Product use in unapproved indication [Unknown]
  - Methaemoglobinaemia [Recovered/Resolved]
